FAERS Safety Report 24603857 (Version 5)
Quarter: 2024Q4

REPORT INFORMATION
  Report Type: Report from Study
  Country: US (occurrence: US)
  Receive Date: 20241111
  Receipt Date: 20241211
  Transmission Date: 20250115
  Serious: Yes (Other)
  Sender: UCB
  Company Number: US-UCBSA-2024057449

PATIENT
  Age: 72 Year
  Sex: Female
  Weight: 90 kg

DRUGS (11)
  1. ROTIGOTINE [Suspect]
     Active Substance: ROTIGOTINE
     Indication: Restless legs syndrome
     Dosage: 4 MILLIGRAM, 1 PATCH ONCE DAILY (QD)
     Route: 062
     Dates: start: 2024
  2. PREGABALIN [Concomitant]
     Active Substance: PREGABALIN
     Indication: Product used for unknown indication
     Dosage: 75 MILLIGRAM, ONCE DAILY (QD)
     Route: 048
  3. VICODIN HP [Concomitant]
     Active Substance: ACETAMINOPHEN\HYDROCODONE BITARTRATE
     Indication: Product used for unknown indication
     Dosage: UNK, 3X/DAY (TID)
     Route: 048
  4. ISOPROPYL ALCOHOL [Concomitant]
     Active Substance: ISOPROPYL ALCOHOL
     Indication: Product used for unknown indication
     Dosage: UNK
  5. BUMETANIDE [Concomitant]
     Active Substance: BUMETANIDE
     Indication: Product used for unknown indication
     Dosage: UNK
  6. FUROSEMIDE [Concomitant]
     Active Substance: FUROSEMIDE
     Indication: Product used for unknown indication
     Dosage: UNK
  7. LISINOPRIL [Concomitant]
     Active Substance: LISINOPRIL
     Indication: Product used for unknown indication
     Dosage: UNK
  8. DOXYCYCLINE [Concomitant]
     Active Substance: DOXYCYCLINE
     Indication: Product used for unknown indication
     Dosage: UNK
  9. SYNTHROID [Concomitant]
     Active Substance: LEVOTHYROXINE SODIUM
     Indication: Product used for unknown indication
     Dosage: UNK
  10. DULOXETINE [Concomitant]
     Active Substance: DULOXETINE
     Indication: Product used for unknown indication
     Dosage: UNK
  11. ACYCLOVIR [Concomitant]
     Active Substance: ACYCLOVIR
     Indication: Product used for unknown indication
     Dosage: UNK

REACTIONS (1)
  - Renal failure [Not Recovered/Not Resolved]

NARRATIVE: CASE EVENT DATE: 20240615
